APPROVED DRUG PRODUCT: FOSINOPRIL SODIUM AND HYDROCHLOROTHIAZIDE
Active Ingredient: FOSINOPRIL SODIUM; HYDROCHLOROTHIAZIDE
Strength: 20MG;12.5MG
Dosage Form/Route: TABLET;ORAL
Application: A079025 | Product #002
Applicant: CHARTWELL RX SCIENCES LLC
Approved: Sep 17, 2010 | RLD: No | RS: No | Type: DISCN